FAERS Safety Report 7554074-X (Version None)
Quarter: 2011Q2

REPORT INFORMATION
  Report Type: 
  Country: None (occurrence: None)
  Receive Date: 20110617
  Receipt Date: 20110610
  Transmission Date: 20111010
  Serious: Yes (Disabling, Other)
  Sender: FDA-Public Use
  Company Number: GB-SANOFI-AVENTIS-2011SA036806

PATIENT
  Age: 79 Year
  Sex: Male

DRUGS (6)
  1. PLAVIX [Suspect]
     Indication: HYPERCHOLESTEROLAEMIA
     Route: 048
     Dates: start: 20110223, end: 20110331
  2. SIMVASTATIN [Suspect]
     Route: 048
     Dates: start: 20110223, end: 20110310
  3. ASPIRIN [Concomitant]
     Route: 048
     Dates: start: 20110221
  4. RAMIPRIL [Concomitant]
     Indication: HYPERTENSION
     Route: 048
     Dates: start: 20110223, end: 20110310
  5. PLAVIX [Suspect]
     Route: 048
     Dates: start: 20110223, end: 20110331
  6. TAMSULOSIN HCL [Concomitant]
     Indication: BENIGN PROSTATIC HYPERPLASIA
     Route: 048

REACTIONS (4)
  - MYALGIA [None]
  - MUSCULAR WEAKNESS [None]
  - DISABILITY [None]
  - OFF LABEL USE [None]
